FAERS Safety Report 6257436-6 (Version None)
Quarter: 2009Q3

REPORT INFORMATION
  Report Type: 
  Country: None (occurrence: None)
  Receive Date: 20090706
  Receipt Date: 20090630
  Transmission Date: 20100115
  Serious: Yes (Other)
  Sender: FDA-Public Use
  Company Number: AU-WYE-G03977309

PATIENT

DRUGS (2)
  1. EFFEXOR [Suspect]
  2. AURORIX [Suspect]

REACTIONS (3)
  - ALCOHOL ABUSE [None]
  - DRUG ABUSE [None]
  - MALAISE [None]
